FAERS Safety Report 20195296 (Version 7)
Quarter: 2022Q2

REPORT INFORMATION
  Report Type: Report from Study
  Country: BR (occurrence: BR)
  Receive Date: 20211216
  Receipt Date: 20220411
  Transmission Date: 20220721
  Serious: Yes (Other)
  Sender: FDA-Public Use
  Company Number: BR-NOVARTISPH-NVSC2021BR286827

PATIENT
  Age: 86 Year
  Sex: Female

DRUGS (3)
  1. KISQALI [Suspect]
     Active Substance: RIBOCICLIB
     Indication: Product used for unknown indication
     Dosage: 3 DOSAGE FORM, QD
     Route: 065
     Dates: start: 20211119
  2. KISQALI [Suspect]
     Active Substance: RIBOCICLIB
     Dosage: UNK (3 OR 4 MONTHS AGO)
     Route: 065
  3. XGEVA [Concomitant]
     Active Substance: DENOSUMAB
     Indication: Product used for unknown indication
     Dosage: UNK (ALMOST 2 YEARS)
     Route: 065

REACTIONS (17)
  - Metastases to spine [Unknown]
  - Metastases to pelvis [Unknown]
  - Fatigue [Not Recovered/Not Resolved]
  - Hyperaesthesia teeth [Unknown]
  - Emotional disorder [Unknown]
  - Pain in extremity [Recovering/Resolving]
  - Myalgia [Unknown]
  - Tooth loss [Unknown]
  - Tooth disorder [Not Recovered/Not Resolved]
  - Gingival pain [Not Recovered/Not Resolved]
  - Urticaria [Unknown]
  - Pruritus [Unknown]
  - Skin discolouration [Unknown]
  - Gait disturbance [Unknown]
  - Alopecia [Not Recovered/Not Resolved]
  - Rash [Unknown]
  - Pain [Recovering/Resolving]
